FAERS Safety Report 4720984-1 (Version None)
Quarter: 2005Q3

REPORT INFORMATION
  Report Type: 
  Country: None (occurrence: None)
  Receive Date: 20050720
  Receipt Date: 20050713
  Transmission Date: 20060218
  Serious: Yes (Hospitalization, Other)
  Sender: FDA-Public Use
  Company Number: 2005061910

PATIENT
  Age: 76 Year
  Sex: Male

DRUGS (1)
  1. CARDURA [Suspect]
     Indication: BENIGN PROSTATIC HYPERPLASIA
     Dosage: 4 MG (4 MG,1 IN 24 HR),ORAL
     Route: 048
     Dates: start: 19990501, end: 20050201

REACTIONS (1)
  - BENIGN PROSTATIC HYPERPLASIA [None]
